FAERS Safety Report 8055874-2 (Version None)
Quarter: 2012Q1

REPORT INFORMATION
  Report Type: 
  Country: None (occurrence: None)
  Receive Date: 20120119
  Receipt Date: 20120119
  Transmission Date: 20120608
  Serious: Yes (Life-Threatening, Hospitalization)
  Sender: FDA-Public Use
  Company Number: None

PATIENT
  Age: 57 Year
  Sex: Male
  Weight: 127 kg

DRUGS (1)
  1. XARELTO [Suspect]
     Indication: POSTOPERATIVE CARE
     Dosage: 10MG
     Route: 048
     Dates: start: 20111107, end: 20111110

REACTIONS (2)
  - THROMBOSIS [None]
  - PULMONARY EMBOLISM [None]
